FAERS Safety Report 15118834 (Version 1)
Quarter: 2018Q3

REPORT INFORMATION
  Report Type: Spontaneous
  Country: US (occurrence: US)
  Receive Date: 20180709
  Receipt Date: 20180709
  Transmission Date: 20181010
  Serious: No
  Sender: FDA-Public Use
  Company Number: US-GLENMARK PHARMACEUTICALS-2018GMK036051

PATIENT

DRUGS (1)
  1. ALCLOMETASONE DIPROPIONATE. [Suspect]
     Active Substance: ALCLOMETASONE DIPROPIONATE
     Indication: PSORIASIS
     Dosage: 1 DF, BID
     Route: 061

REACTIONS (6)
  - Ocular hyperaemia [Unknown]
  - Erythema [Not Recovered/Not Resolved]
  - Product administered at inappropriate site [Unknown]
  - Eye pruritus [Unknown]
  - Dry eye [Unknown]
  - Erythema of eyelid [Unknown]
